FAERS Safety Report 11009224 (Version 3)
Quarter: 2015Q2

REPORT INFORMATION
  Report Type: Spontaneous
  Country: US (occurrence: US)
  Receive Date: 20150410
  Receipt Date: 20150526
  Transmission Date: 20150821
  Serious: No
  Sender: FDA-Public Use
  Company Number: US-PFIZER INC-2015119865

PATIENT
  Age: 65 Year
  Sex: Female

DRUGS (6)
  1. LYRICA [Suspect]
     Active Substance: PREGABALIN
     Indication: FIBROMYALGIA
     Dosage: 50 MG, 2X/DAY
     Dates: start: 20150315
  2. CYMBALTA [Concomitant]
     Active Substance: DULOXETINE HYDROCHLORIDE
     Dosage: 75 MG, 2X/DAY
     Dates: start: 201402
  3. CLONAZEPAM. [Concomitant]
     Active Substance: CLONAZEPAM
     Dosage: 2 MG, 1X/DAY
     Dates: start: 201503
  4. HYDROCODONE, PARACETAMOL [Concomitant]
     Dosage: UNK, AS NEEDED (5-325)
     Dates: start: 201411
  5. LYRICA [Suspect]
     Active Substance: PREGABALIN
     Dosage: 75 MG, 2X/DAY
  6. WELLBUTRIN SR [Concomitant]
     Active Substance: BUPROPION HYDROCHLORIDE
     Dosage: 450 MG, 1X/DAY
     Dates: start: 201206

REACTIONS (7)
  - Weight increased [Not Recovered/Not Resolved]
  - Spinal disorder [Unknown]
  - Arthropathy [Unknown]
  - Arthritis [Unknown]
  - Musculoskeletal discomfort [Unknown]
  - Bursitis [Unknown]
  - Nerve block [Unknown]

NARRATIVE: CASE EVENT DATE: 20150325
